FAERS Safety Report 6765829-3 (Version None)
Quarter: 2010Q2

REPORT INFORMATION
  Report Type: 
  Country: None (occurrence: None)
  Receive Date: 20100609
  Receipt Date: 20100527
  Transmission Date: 20101027
  Serious: Yes (Life-Threatening)
  Sender: FDA-Public Use
  Company Number: 602215

PATIENT

DRUGS (2)
  1. SODIUM BICARBONATE [Suspect]
     Indication: NERVE BLOCK
     Dates: start: 20100101
  2. LIDOCAINE HCL [Suspect]
     Indication: NERVE BLOCK
     Dates: start: 20100101

REACTIONS (3)
  - APPARENT DEATH [None]
  - DRUG TOXICITY [None]
  - RESPIRATORY ARREST [None]
